FAERS Safety Report 9644451 (Version 1)
Quarter: 2013Q4

REPORT INFORMATION
  Report Type: Spontaneous
  Country: TR (occurrence: TR)
  Receive Date: 20131025
  Receipt Date: 20131025
  Transmission Date: 20140711
  Serious: Yes (Other)
  Sender: FDA-Public Use
  Company Number: TR-PAR PHARMACEUTICAL, INC-2013SCPR007734

PATIENT
  Sex: 0

DRUGS (1)
  1. IMIPRAMINE [Suspect]
     Indication: ENURESIS
     Dosage: 10 MG, / DAY
     Route: 065

REACTIONS (1)
  - Dystonia [Recovered/Resolved]
